FAERS Safety Report 7386411-3 (Version None)
Quarter: 2011Q1

REPORT INFORMATION
  Report Type: 
  Country: None (occurrence: None)
  Receive Date: 20110331
  Receipt Date: 20110328
  Transmission Date: 20110831
  Serious: Yes (Death)
  Sender: FDA-Public Use
  Company Number: PHHY2011AR25433

PATIENT
  Sex: Female

DRUGS (1)
  1. EXELON [Suspect]
     Indication: PARKINSON'S DISEASE
     Dosage: PATCH 10 CM
     Route: 062
     Dates: start: 20101101

REACTIONS (1)
  - CARDIO-RESPIRATORY ARREST [None]
